FAERS Safety Report 5868098-1 (Version None)
Quarter: 2008Q3

REPORT INFORMATION
  Report Type: 
  Country: None (occurrence: None)
  Receive Date: 20080902
  Receipt Date: 20080410
  Transmission Date: 20090109
  Serious: No
  Sender: FDA-Public Use
  Company Number: US-ABBOTT-08P-163-0446756-00

PATIENT
  Sex: Male
  Weight: 59.928 kg

DRUGS (5)
  1. DEPAKOTE ER [Suspect]
     Indication: BIPOLAR DISORDER
     Dosage: 500 MG IN AM 1000MG AT HS
     Route: 048
     Dates: start: 20080212, end: 20080403
  2. DEPAKOTE ER [Suspect]
     Indication: ASPERGER'S DISORDER
     Dosage: 500 MG IN AM 750 MG AT HS
     Route: 048
     Dates: start: 20080403
  3. DEPAKOTE ER [Suspect]
     Indication: ATTENTION DEFICIT/HYPERACTIVITY DISORDER
  4. DEPAKOTE ER [Suspect]
     Indication: AUTISM
  5. GUANFACINE HYDROCHLORIDE [Concomitant]
     Indication: ATTENTION DEFICIT/HYPERACTIVITY DISORDER
     Route: 048
     Dates: start: 20080310

REACTIONS (5)
  - DYSGRAPHIA [None]
  - ILL-DEFINED DISORDER [None]
  - NAUSEA [None]
  - SOMNOLENCE [None]
  - WEIGHT INCREASED [None]
